FAERS Safety Report 4918065-7 (Version None)
Quarter: 2006Q1

REPORT INFORMATION
  Report Type: 
  Country: None (occurrence: None)
  Receive Date: 20060221
  Receipt Date: 20050930
  Transmission Date: 20060701
  Serious: Yes (Hospitalization)
  Sender: FDA-Public Use
  Company Number: US-MERCK-0510USA00717

PATIENT
  Age: 56 Year
  Sex: Female
  Weight: 66 kg

DRUGS (4)
  1. VIOXX [Suspect]
     Indication: ARTHRALGIA
     Route: 048
     Dates: start: 20001212, end: 20010628
  2. NEXIUM [Concomitant]
     Route: 065
  3. TYLENOL W/ CODEINE NO. 3 [Concomitant]
     Route: 065
  4. VITAMIN E [Concomitant]
     Route: 065

REACTIONS (5)
  - ANGINA UNSTABLE [None]
  - ARTERIOSCLEROSIS CORONARY ARTERY [None]
  - HAEMATURIA [None]
  - IMPLANT SITE THROMBOSIS [None]
  - MYOCARDIAL INFARCTION [None]
